FAERS Safety Report 5038152-5 (Version None)
Quarter: 2006Q2

REPORT INFORMATION
  Report Type: 
  Country: None (occurrence: None)
  Receive Date: 20060626
  Receipt Date: 20040621
  Transmission Date: 20061013
  Serious: No
  Sender: FDA-Public Use
  Company Number: TPA2003A01733

PATIENT
  Age: 61 Year
  Sex: Male
  Weight: 96.2079 kg

DRUGS (18)
  1. ACTOS [Suspect]
     Indication: DIABETES MELLITUS NON-INSULIN-DEPENDENT
     Dosage: 1 IN 1 D, PER ORAL
     Route: 048
     Dates: start: 20011101, end: 20020101
  2. AVANDIA [Suspect]
     Indication: DIABETES MELLITUS NON-INSULIN-DEPENDENT
     Dosage: 8 MG, 1 IN 1 D
     Dates: start: 20001201, end: 20020101
  3. INSULIN [Concomitant]
  4. NEURONTIN [Concomitant]
  5. RENAGEL [Concomitant]
  6. PHOSLO [Concomitant]
  7. NEPHROCAP (FOLIC ACID, VITAMINS NOS) [Concomitant]
  8. ZESTRIL [Concomitant]
  9. SPECTAZOLE (ECONAZOLE NITRATE) (CREAM) [Concomitant]
  10. QUININE SULFATE [Concomitant]
  11. ASPIRIN [Concomitant]
  12. EPOGEN [Concomitant]
  13. MECLIZINE [Concomitant]
  14. AMARYL [Concomitant]
  15. MULTIVITAMIN [Concomitant]
  16. ASCORBIC ACID [Concomitant]
  17. VITAMIN E [Concomitant]
  18. INDAPAMIDE [Concomitant]

REACTIONS (18)
  - ANGIOPATHY [None]
  - CATARACT [None]
  - DIABETIC RETINOPATHY [None]
  - DIALYSIS [None]
  - DYSPNOEA [None]
  - EYE SWELLING [None]
  - FLUID RETENTION [None]
  - JOINT SWELLING [None]
  - MACULAR OEDEMA [None]
  - OEDEMA PERIPHERAL [None]
  - PHOTOSENSITIVITY REACTION [None]
  - PITTING OEDEMA [None]
  - POST PROCEDURAL COMPLICATION [None]
  - RETINAL ANEURYSM [None]
  - RETINAL EXUDATES [None]
  - RETINAL HAEMORRHAGE [None]
  - SURGICAL PROCEDURE REPEATED [None]
  - WEIGHT INCREASED [None]
